FAERS Safety Report 25392822 (Version 3)
Quarter: 2025Q4

REPORT INFORMATION
  Report Type: Report from Study
  Country: US (occurrence: US)
  Receive Date: 20250603
  Receipt Date: 20251007
  Transmission Date: 20260118
  Serious: Yes (Other)
  Sender: MALLINCKRODT
  Company Number: US-MALLINCKRODT-MNK202503214

PATIENT
  Age: 82 Year
  Sex: Female

DRUGS (6)
  1. CORTICOTROPIN [Suspect]
     Active Substance: CORTICOTROPIN
     Indication: Uveitis
     Route: 058
     Dates: start: 202508, end: 202508
  2. GABAPENTIN [Concomitant]
     Active Substance: GABAPENTIN
     Dosage: UNKNOWN
  3. DUREZOL [Concomitant]
     Active Substance: DIFLUPREDNATE
     Dosage: UNKNOWN
  4. BRIMONIDINE TARTRATE [Concomitant]
     Active Substance: BRIMONIDINE TARTRATE
     Dosage: UNKNOWN
  5. LISINOPRIL [Concomitant]
     Active Substance: LISINOPRIL
     Dosage: UNKNOWN
  6. ACUVAIL [Concomitant]
     Active Substance: KETOROLAC TROMETHAMINE
     Dosage: UNKNOWN

REACTIONS (3)
  - COVID-19 [Unknown]
  - Pneumonia [Unknown]
  - Bronchitis chronic [Recovering/Resolving]

NARRATIVE: CASE EVENT DATE: 20250101
